FAERS Safety Report 11289087 (Version 1)
Quarter: 2015Q3

REPORT INFORMATION
  Report Type: Spontaneous
  Country: JP (occurrence: JP)
  Receive Date: 20150721
  Receipt Date: 20150721
  Transmission Date: 20151125
  Serious: Yes (Hospitalization)
  Sender: FDA-Public Use
  Company Number: JP-JNJFOC-20150707833

PATIENT
  Age: 89 Year
  Sex: Female

DRUGS (1)
  1. REMINYL [Suspect]
     Active Substance: GALANTAMINE
     Indication: DEMENTIA
     Route: 048

REACTIONS (3)
  - Pneumonia aspiration [Unknown]
  - Nausea [Unknown]
  - Vomiting [Unknown]
